FAERS Safety Report 5440793-8 (Version None)
Quarter: 2007Q3

REPORT INFORMATION
  Report Type: 
  Country: None (occurrence: None)
  Receive Date: 20070731
  Receipt Date: 20070514
  Transmission Date: 20080115
  Serious: No
  Sender: FDA-Public Use
  Company Number: US200705003906

PATIENT
  Age: 56 Year
  Sex: Female
  Weight: 89.8 kg

DRUGS (8)
  1. BYETTA [Suspect]
     Indication: TYPE 2 DIABETES MELLITUS
     Dosage: 5 UG, 2/D, SUBCUTANOEUS
     Dates: start: 20061001
  2. GLIPIZIDE [Concomitant]
  3. TRICOR [Concomitant]
  4. ALTACE [Concomitant]
  5. METFORMIN HCL [Concomitant]
  6. AVANDIA [Concomitant]
  7. CRESTOR /01588601/ (ROSUVASTATIN) [Concomitant]
  8. METOPROLOL TARTRATE [Concomitant]

REACTIONS (5)
  - EARLY SATIETY [None]
  - INJECTION SITE BRUISING [None]
  - NAUSEA [None]
  - VOMITING [None]
  - WEIGHT DECREASED [None]
